FAERS Safety Report 13785197 (Version 1)
Quarter: 2017Q3

REPORT INFORMATION
  Report Type: Spontaneous
  Country: US (occurrence: US)
  Receive Date: 20170725
  Receipt Date: 20170725
  Transmission Date: 20171127
  Serious: No
  Sender: FDA-Public Use
  Company Number: US-TEVA-699282USA

PATIENT
  Sex: Female

DRUGS (2)
  1. GILENYA [Interacting]
     Active Substance: FINGOLIMOD HYDROCHLORIDE
     Route: 065
  2. CITALOPRAM [Suspect]
     Active Substance: CITALOPRAM HYDROBROMIDE
     Route: 065

REACTIONS (1)
  - Drug interaction [Unknown]
